FAERS Safety Report 18596316 (Version 4)
Quarter: 2021Q1

REPORT INFORMATION
  Report Type: Spontaneous
  Country: JP (occurrence: JP)
  Receive Date: 20201209
  Receipt Date: 20210113
  Transmission Date: 20210419
  Serious: Yes (Disabling)
  Sender: FDA-Public Use
  Company Number: JP-ELI_LILLY_AND_COMPANY-JP202012000104AA

PATIENT
  Age: 83 Year
  Sex: Male

DRUGS (13)
  1. TRULICITY [Suspect]
     Active Substance: DULAGLUTIDE
     Indication: TYPE 2 DIABETES MELLITUS
     Dosage: 0.75 MG, WEEKLY (1/W)
     Route: 058
     Dates: start: 20200919
  2. ZEFNART [Concomitant]
     Indication: TINEA INFECTION
     Dosage: UNK, DAILY
     Dates: start: 20190306
  3. VOGLIBOSE [Suspect]
     Active Substance: VOGLIBOSE
     Indication: TYPE 2 DIABETES MELLITUS
     Dosage: 0.6 MG, DAILY
     Route: 065
     Dates: start: 20200926
  4. PREDNISOLONE. [Concomitant]
     Active Substance: PREDNISOLONE
     Indication: PEMPHIGOID
     Dosage: 8 MG, DAILY
     Dates: start: 2017
  5. EVIPROSTAT [SERENOA REPENS] [Concomitant]
     Indication: DYSURIA
     Dosage: 3 DOSAGE FORM, DAILY
     Dates: start: 20181207
  6. SUREPOST [Concomitant]
     Active Substance: REPAGLINIDE
     Indication: TYPE 2 DIABETES MELLITUS
     Dosage: 1.5 MG, DAILY
     Dates: start: 20200721
  7. WHITE PETROLATUM [Concomitant]
     Active Substance: PETROLATUM
  8. PREDNISOLONE. [Concomitant]
     Active Substance: PREDNISOLONE
     Dosage: 7 MG, DAILY
     Dates: start: 20180706, end: 20201004
  9. LIXIANA [Concomitant]
     Active Substance: EDOXABAN TOSYLATE
     Indication: THROMBOSIS
     Dosage: 30 MG, DAILY
     Dates: start: 20180803
  10. ANTEBATE [Concomitant]
     Active Substance: BETAMETHASONE DIPROPIONATE
     Indication: PEMPHIGOID
     Dosage: UNK, BID
  11. DONEPEZIL HYDROCHLORIDE. [Concomitant]
     Active Substance: DONEPEZIL HYDROCHLORIDE
     Indication: DEMENTIA
     Dosage: 5 MG, DAILY
  12. URIEF [Concomitant]
     Active Substance: SILODOSIN
     Indication: DYSURIA
     Dosage: 8 MG, DAILY
     Dates: start: 20181207
  13. METGLUCO [Suspect]
     Active Substance: METFORMIN HYDROCHLORIDE
     Indication: TYPE 2 DIABETES MELLITUS
     Dosage: 750 MG, DAILY
     Route: 065
     Dates: start: 20200916

REACTIONS (1)
  - Pemphigoid [Recovering/Resolving]

NARRATIVE: CASE EVENT DATE: 20201126
